FAERS Safety Report 5511469-3 (Version None)
Quarter: 2007Q4

REPORT INFORMATION
  Report Type: 
  Country: None (occurrence: None)
  Receive Date: 20071109
  Receipt Date: 20071031
  Transmission Date: 20080405
  Serious: Yes (Other)
  Sender: FDA-Public Use
  Company Number: US-JNJFOC-20070800496

PATIENT
  Sex: Female
  Weight: 72.58 kg

DRUGS (11)
  1. REMICADE [Suspect]
     Route: 042
  2. REMICADE [Suspect]
     Route: 042
  3. REMICADE [Suspect]
     Route: 042
  4. REMICADE [Suspect]
     Indication: RHEUMATOID ARTHRITIS
     Dosage: 3 INFUSIONS ON UNSPECIFIED DATES.
     Route: 042
  5. PREDNISONE [Concomitant]
     Indication: RHEUMATOID ARTHRITIS
  6. LEVOTHYROXINE SODIUM [Concomitant]
     Indication: THYROID DISORDER
  7. TRIAZOLAM [Concomitant]
     Indication: SLEEP DISORDER
     Dosage: AT NIGHT
  8. POTASSIUM CHLORIDE [Concomitant]
     Dosage: 1-2 DAILY
  9. PREMPRO [Concomitant]
     Indication: MENOPAUSE
  10. DARVOCET [Concomitant]
  11. LIPITOR [Concomitant]
     Indication: BLOOD CHOLESTEROL

REACTIONS (1)
  - COLON CANCER [None]
